FAERS Safety Report 16865312 (Version 1)
Quarter: 2019Q3

REPORT INFORMATION
  Report Type: Spontaneous
  Country: CA (occurrence: CA)
  Receive Date: 20190930
  Receipt Date: 20190930
  Transmission Date: 20191005
  Serious: Yes (Disabling)
  Sender: FDA-Public Use
  Company Number: CA-TEVA-2019-CA-1114477

PATIENT
  Age: 51 Year
  Sex: Male
  Weight: 86.26 kg

DRUGS (1)
  1. HYDROMORPHONE [Suspect]
     Active Substance: HYDROMORPHONE
     Indication: INTERVERTEBRAL DISC PROTRUSION
     Dosage: 108 MILLIGRAM DAILY;

REACTIONS (4)
  - Irritability [Unknown]
  - Hyperhidrosis [Unknown]
  - Aggression [Unknown]
  - Tremor [Unknown]
